FAERS Safety Report 6140969-0 (Version None)
Quarter: 2009Q1

REPORT INFORMATION
  Report Type: 
  Country: None (occurrence: None)
  Receive Date: 20090331
  Receipt Date: 20090330
  Transmission Date: 20090719
  Serious: Yes (Other)
  Sender: FDA-Public Use
  Company Number: SP02288

PATIENT
  Age: 46 Year
  Sex: Male

DRUGS (11)
  1. VISICOL [Suspect]
     Indication: COLONOSCOPY
     Dosage: 50 GM, ORAL
     Route: 048
     Dates: start: 20090220, end: 20090220
  2. AMITRIPTYLINE HCL [Suspect]
     Dosage: 75 MG
     Dates: start: 20031101
  3. IMIPRAMINE HYDROCHLORIDE [Suspect]
     Dosage: 75 MG
  4. PERPHENAZINE [Suspect]
     Dosage: 6 MG
  5. BROMAZEPAM [Suspect]
     Dosage: 6 MG
  6. TRAZODONE HCL [Suspect]
     Dosage: 75 MG
  7. MIANSERIN HYDROCHLORIDE [Suspect]
     Dosage: 30 MG
  8. FLUNITRAZEPAM [Suspect]
     Dosage: 2 MG
  9. CHLORPROMAZINE [Suspect]
     Dosage: 12.5 MG
  10. MAGNESIUM OXIDE [Suspect]
     Dosage: 1780 MG
  11. SENNOSIDE [Concomitant]

REACTIONS (6)
  - DELIRIUM [None]
  - DRUG EFFECT INCREASED [None]
  - FALL [None]
  - GAIT DISTURBANCE [None]
  - LOSS OF CONSCIOUSNESS [None]
  - SPEECH DISORDER [None]
